FAERS Safety Report 7108514-0 (Version None)
Quarter: 2010Q4

REPORT INFORMATION
  Report Type: 
  Country: None (occurrence: None)
  Receive Date: 20101117
  Receipt Date: 20100804
  Transmission Date: 20110411
  Serious: No
  Sender: FDA-Public Use
  Company Number: A0874021A

PATIENT
  Age: 73 Year
  Sex: Female

DRUGS (7)
  1. VOTRIENT [Suspect]
     Dosage: 4TAB PER DAY
     Route: 048
  2. AGGRENOX [Concomitant]
  3. BLOOD PRESSURE MEDICATION [Concomitant]
  4. UNSPECIFIED MEDICATION [Concomitant]
  5. CALCIUM [Concomitant]
  6. UNSPECIFIED MEDICATION [Concomitant]
  7. NAUSEA MEDICATION (UNKNOWN) [Concomitant]

REACTIONS (3)
  - DIARRHOEA [None]
  - HEADACHE [None]
  - SPEECH DISORDER [None]
